FAERS Safety Report 4632719-1 (Version None)
Quarter: 2005Q2

REPORT INFORMATION
  Report Type: 
  Country: None (occurrence: None)
  Receive Date: 20050412
  Receipt Date: 20050202
  Transmission Date: 20051028
  Serious: Yes (Hospitalization, Disabling)
  Sender: FDA-Public Use
  Company Number: 200510432FR

PATIENT
  Age: 53 Year
  Sex: Female
  Weight: 68 kg

DRUGS (4)
  1. TAXOTERE [Suspect]
     Indication: INFLAMMATORY CARCINOMA OF THE BREAST
     Route: 042
     Dates: start: 20041028, end: 20041028
  2. MYOCET [Suspect]
     Indication: INFLAMMATORY CARCINOMA OF THE BREAST
     Route: 042
     Dates: start: 20041028, end: 20041028
  3. ZOPHREN [Concomitant]
     Route: 042
     Dates: start: 20041028, end: 20041028
  4. PRIMPERAN TAB [Concomitant]
     Route: 042
     Dates: start: 20041028, end: 20041028

REACTIONS (4)
  - BREAST INFECTION [None]
  - ERYTHEMA [None]
  - EXTRAVASATION [None]
  - SKIN NECROSIS [None]
